FAERS Safety Report 14822208 (Version 1)
Quarter: 2018Q2

REPORT INFORMATION
  Report Type: Report from Study
  Country: ID (occurrence: ID)
  Receive Date: 20180427
  Receipt Date: 20180427
  Transmission Date: 20180711
  Serious: Yes (Death, Life-Threatening, Hospitalization, Other)
  Sender: FDA-Public Use
  Company Number: ID-BAYER-2018-030990

PATIENT
  Age: 65 Year
  Sex: Male

DRUGS (17)
  1. MEGESTROL ACETATE. [Concomitant]
     Active Substance: MEGESTROL ACETATE
  2. TRAMAL [Concomitant]
     Active Substance: TRAMADOL
  3. GLUCOPHAGE [Concomitant]
     Active Substance: METFORMIN HYDROCHLORIDE
  4. MOTILIUM [Concomitant]
     Active Substance: DOMPERIDONE
  5. NEXAVAR [Suspect]
     Active Substance: SORAFENIB
     Indication: HEPATOCELLULAR CARCINOMA
     Dosage: 200 MG, BID
     Route: 048
     Dates: start: 20180130, end: 20180402
  6. BARACLUDE [Concomitant]
     Active Substance: ENTECAVIR
  7. SUCRALFATE. [Concomitant]
     Active Substance: SUCRALFATE
  8. GLUCOBAY [Concomitant]
     Active Substance: ACARBOSE
     Dosage: UNK
     Dates: end: 20180403
  9. URSODEOXYCHOLIC ACID [Concomitant]
     Active Substance: URSODIOL
  10. LASIX [Concomitant]
     Active Substance: FUROSEMIDE
  11. NEXAVAR [Suspect]
     Active Substance: SORAFENIB
     Indication: HEPATOCELLULAR CARCINOMA
     Dosage: 1 X 200 MG
     Route: 048
     Dates: start: 20180403
  12. PROPANOLOL [Concomitant]
     Active Substance: PROPRANOLOL HYDROCHLORIDE
  13. ALDACTONE [Concomitant]
     Active Substance: SPIRONOLACTONE
  14. LASIX SPECIAL [Concomitant]
  15. ALDACTONE [POTASSIUM CANRENOATE] [Concomitant]
     Active Substance: CANRENOATE POTASSIUM
  16. TARACTAN [Concomitant]
     Active Substance: CHLORPROTHIXENE
  17. PREVACID [Concomitant]
     Active Substance: LANSOPRAZOLE

REACTIONS (35)
  - Insomnia [Not Recovered/Not Resolved]
  - Off label use [Not Recovered/Not Resolved]
  - Renal failure [Not Recovered/Not Resolved]
  - Blood bilirubin increased [Not Recovered/Not Resolved]
  - Erythema [Not Recovered/Not Resolved]
  - Lung infection [Not Recovered/Not Resolved]
  - Death [Fatal]
  - Condition aggravated [Not Recovered/Not Resolved]
  - Hepatic haemorrhage [Not Recovered/Not Resolved]
  - Ascites [Not Recovered/Not Resolved]
  - Diarrhoea [Not Recovered/Not Resolved]
  - Asthenia [Not Recovered/Not Resolved]
  - Aspartate aminotransferase increased [Not Recovered/Not Resolved]
  - Pain [None]
  - Dyspnoea [None]
  - Off label use [None]
  - Laboratory test abnormal [Not Recovered/Not Resolved]
  - Blood albumin decreased [Not Recovered/Not Resolved]
  - Anxiety [None]
  - Nausea [Not Recovered/Not Resolved]
  - Diarrhoea [None]
  - Blood pressure decreased [None]
  - Fatigue [Not Recovered/Not Resolved]
  - Decreased appetite [Recovered/Resolved]
  - Nausea [Recovered/Resolved]
  - Abdominal pain upper [Recovered/Resolved]
  - Alanine aminotransferase increased [Not Recovered/Not Resolved]
  - Hepatic function abnormal [None]
  - Vascular rupture [Not Recovered/Not Resolved]
  - Pneumonia [Recovering/Resolving]
  - Hypoaesthesia [Not Recovered/Not Resolved]
  - Weight increased [None]
  - Decreased appetite [None]
  - Abdominal distension [None]
  - Coagulopathy [None]

NARRATIVE: CASE EVENT DATE: 20180212
